FAERS Safety Report 5237549-8 (Version None)
Quarter: 2007Q1

REPORT INFORMATION
  Report Type: 
  Country: None (occurrence: None)
  Receive Date: 20070213
  Receipt Date: 20070205
  Transmission Date: 20070707
  Serious: Yes (Other)
  Sender: FDA-Public Use
  Company Number: US-ELI_LILLY_AND_COMPANY-US200702001034

PATIENT
  Sex: Male

DRUGS (1)
  1. HUMALOG [Suspect]
     Indication: DIABETES MELLITUS INSULIN-DEPENDENT
     Dosage: UNK, UNKNOWN
     Route: 058
     Dates: start: 19870101

REACTIONS (5)
  - BLOOD GLUCOSE INCREASED [None]
  - DELIRIUM [None]
  - DRUG INEFFECTIVE [None]
  - KETOACIDOSIS [None]
  - LOSS OF CONSCIOUSNESS [None]
